FAERS Safety Report 5479039-3 (Version None)
Quarter: 2007Q4

REPORT INFORMATION
  Report Type: 
  Country: None (occurrence: None)
  Receive Date: 20071006
  Receipt Date: 20070925
  Transmission Date: 20080405
  Serious: Yes (Other)
  Sender: FDA-Public Use
  Company Number: US-PFIZER INC-2007081159

PATIENT
  Age: 61 Year
  Sex: Female
  Weight: 61.363 kg

DRUGS (1)
  1. CHANTIX [Suspect]
     Indication: SMOKING CESSATION THERAPY

REACTIONS (3)
  - NAUSEA [None]
  - VITREOUS DISORDER [None]
  - WEIGHT INCREASED [None]
